FAERS Safety Report 8762999 (Version 1)
Quarter: 2012Q4

REPORT INFORMATION
  Report Type: Spontaneous
  Country: US (occurrence: None)
  Receive Date: 20120830
  Receipt Date: 20120830
  Transmission Date: 20130627
  Serious: Yes (Disabling)
  Sender: FDA-Public Use
  Company Number: None

PATIENT
  Age: 51 Year
  Sex: Female
  Weight: 90.72 kg

DRUGS (2)
  1. TOPAMAX [Suspect]
     Dates: start: 20120216, end: 20120709
  2. TOPAMAX [Suspect]
     Dates: start: 20120216, end: 20120709

REACTIONS (12)
  - Headache [None]
  - Headache [None]
  - Balance disorder [None]
  - Depression [None]
  - Suicidal ideation [None]
  - Fluid retention [None]
  - Amnesia [None]
  - Confusional state [None]
  - Arthralgia [None]
  - Joint stiffness [None]
  - Convulsion [None]
  - Drug ineffective [None]
